FAERS Safety Report 5889652-7 (Version None)
Quarter: 2008Q3

REPORT INFORMATION
  Report Type: 
  Country: None (occurrence: None)
  Receive Date: 20080919
  Receipt Date: 20080909
  Transmission Date: 20090109
  Serious: Yes (Other)
  Sender: FDA-Public Use
  Company Number: US-ROCHE-579672

PATIENT
  Sex: Male
  Weight: 83.9 kg

DRUGS (2)
  1. ISOTRETINOIN (NON-ROCHE/NON-COMPARATOR) [Suspect]
     Indication: ACNE
     Dosage: OTHER INDICATION: NODULOCYSTIC SCARING ACNE VULGARIS DOSE: 30 MG IN MORNING (AM) AND 60 MG AT NIGHT
     Route: 048
     Dates: start: 20080108, end: 20080618
  2. ADVIL [Concomitant]
     Dosage: AS NEEDED
     Route: 048

REACTIONS (2)
  - INTENTIONAL SELF-INJURY [None]
  - THEFT [None]
